FAERS Safety Report 6865462-9 (Version None)
Quarter: 2010Q3

REPORT INFORMATION
  Report Type: 
  Country: None (occurrence: None)
  Receive Date: 20100721
  Receipt Date: 20080621
  Transmission Date: 20110219
  Serious: No
  Sender: FDA-Public Use
  Company Number: US-PFIZER INC-2008035619

PATIENT
  Sex: Female
  Weight: 44.545 kg

DRUGS (5)
  1. CHANTIX [Suspect]
     Indication: SMOKING CESSATION THERAPY
     Dates: start: 20080401
  2. ANASTROZOLE [Concomitant]
  3. FOSAMAX [Concomitant]
  4. CENTRUM [Concomitant]
  5. VITAMINS [Concomitant]

REACTIONS (2)
  - DIARRHOEA [None]
  - NAUSEA [None]
